FAERS Safety Report 8486877-1 (Version None)
Quarter: 2012Q3

REPORT INFORMATION
  Report Type: 
  Country: None (occurrence: None)
  Receive Date: 20120704
  Receipt Date: 20120625
  Transmission Date: 20120928
  Serious: Yes (Hospitalization)
  Sender: FDA-Public Use
  Company Number: US-BRISTOL-MYERS SQUIBB COMPANY-16713109

PATIENT
  Age: 59 Year
  Sex: Male
  Weight: 97 kg

DRUGS (2)
  1. TAXOL [Suspect]
     Indication: OESOPHAGEAL ADENOCARCINOMA
     Dosage: LAST DOSE ON 11JUN12,INTERRUPTED ON 18JUN12 AND 25JUN12,NO OF COURSES: 5
     Dates: start: 20120514
  2. CISPLATIN [Suspect]
     Indication: OESOPHAGEAL ADENOCARCINOMA
     Dosage: LAST DOSE ON 11JUN12,INTERRUPTED ON 18JUN12,25JUN12,NO OF COURSES: 5
     Dates: start: 20120514

REACTIONS (1)
  - ATRIAL FIBRILLATION [None]
